FAERS Safety Report 9030269 (Version 1)
Quarter: 2013Q1

REPORT INFORMATION
  Report Type: Spontaneous
  Country: GB (occurrence: GB)
  Receive Date: 20130122
  Receipt Date: 20130122
  Transmission Date: 20140127
  Serious: Yes (Hospitalization)
  Sender: FDA-Public Use
  Company Number: GB-TEVA-381641ISR

PATIENT
  Age: 87 Year
  Sex: Female

DRUGS (2)
  1. CITALOPRAM [Suspect]
     Dosage: 30 MILLIGRAM DAILY;
     Route: 048
     Dates: end: 201301
  2. CITALOPRAM [Suspect]
     Dosage: 20 MILLIGRAM DAILY;
     Route: 048
     Dates: start: 201301

REACTIONS (4)
  - Fall [Unknown]
  - Hip arthroplasty [Unknown]
  - Platelet function test abnormal [Unknown]
  - Haematemesis [Unknown]
